FAERS Safety Report 5002206-X (Version None)
Quarter: 2006Q2

REPORT INFORMATION
  Report Type: 
  Country: None (occurrence: None)
  Receive Date: 20060511
  Receipt Date: 20060511
  Transmission Date: 20061013
  Serious: Yes (Hospitalization)
  Sender: FDA-Public Use
  Company Number: None

PATIENT
  Sex: Male
  Weight: 97 kg

DRUGS (1)
  1. RAPAMYCIN [Suspect]
     Indication: COLON CANCER METASTATIC
     Dosage: 20 MG WEEKLY PO
     Route: 048
     Dates: start: 20060110, end: 20060418

REACTIONS (1)
  - SINUS ARREST [None]
